FAERS Safety Report 7365799-3 (Version None)
Quarter: 2011Q1

REPORT INFORMATION
  Report Type: 
  Country: None (occurrence: None)
  Receive Date: 20110225
  Receipt Date: 20101026
  Transmission Date: 20110831
  Serious: No
  Sender: FDA-Public Use
  Company Number: 317274

PATIENT
  Sex: Female

DRUGS (2)
  1. VICTOZA [Suspect]
     Indication: PRODUCT USED FOR UNKNOWN INDICATION
     Dosage: 1.8 MG, SUBCUTANEOUS
     Route: 058
  2. ARIMIDEX [Concomitant]

REACTIONS (2)
  - DYSPEPSIA [None]
  - BLOOD GLUCOSE INCREASED [None]
